FAERS Safety Report 5932478-6 (Version None)
Quarter: 2008Q4

REPORT INFORMATION
  Report Type: 
  Country: None (occurrence: None)
  Receive Date: 20081028
  Receipt Date: 20081017
  Transmission Date: 20090506
  Serious: Yes (Other)
  Sender: FDA-Public Use
  Company Number: US-ROCHE-575326

PATIENT
  Sex: Male
  Weight: 72.6 kg

DRUGS (8)
  1. PEG-INTERFERON A-2A (RO 25-8310) [Suspect]
     Indication: HEPATITIS C
     Dosage: FORMULATION: PREFILLED SYRINGE
     Route: 065
     Dates: start: 20080627
  2. PEG-INTERFERON A-2A (RO 25-8310) [Suspect]
     Dosage: FORMULATION: PREFILLED SYRINGE
     Route: 065
     Dates: start: 20081017
  3. RIBASPHERE [Suspect]
     Indication: HEPATITIS C
     Route: 065
     Dates: start: 20080627
  4. RIBASPHERE [Suspect]
     Dosage: DIVIDED DOSAGE
     Route: 065
     Dates: start: 20081017
  5. NEOMYCIN SULFATE TAB [Concomitant]
     Dosage: DOSE: 4 DOSE FORMS THRICE DAILY
  6. LACTULOSE [Concomitant]
  7. CELEXA [Concomitant]
     Indication: ANTIDEPRESSANT THERAPY
  8. MILK THISTLE [Concomitant]
     Dosage: USUAL DOSE RPTD AS 80 MG/ DAY

REACTIONS (2)
  - ENCEPHALOPATHY [None]
  - HYPERAMMONAEMIA [None]
